FAERS Safety Report 17575314 (Version 1)
Quarter: 2020Q1

REPORT INFORMATION
  Report Type: Spontaneous
  Country: JP (occurrence: JP)
  Receive Date: 20200324
  Receipt Date: 20200324
  Transmission Date: 20200409
  Serious: Yes (Other)
  Sender: FDA-Public Use
  Company Number: JP-ROCHE-2573063

PATIENT
  Sex: Male

DRUGS (1)
  1. HEMLIBRA [Suspect]
     Active Substance: EMICIZUMAB-KXWH
     Indication: HAEMOPHILIA A WITHOUT INHIBITORS
     Dosage: DOSAGE IS UNCERTAIN.
     Route: 058

REACTIONS (2)
  - Drug specific antibody present [Unknown]
  - Muscle haemorrhage [Not Recovered/Not Resolved]

NARRATIVE: CASE EVENT DATE: 202003
